FAERS Safety Report 4428951-2 (Version None)
Quarter: 2004Q3

REPORT INFORMATION
  Report Type: 
  Country: None (occurrence: None)
  Receive Date: 20040818
  Receipt Date: 20040601
  Transmission Date: 20050211
  Serious: No
  Sender: FDA-Public Use
  Company Number: US-GLAXOSMITHKLINE-A0512886A

PATIENT
  Age: 75 Year
  Sex: Female

DRUGS (3)
  1. LOTRONEX [Suspect]
     Indication: CHRONIC FATIGUE SYNDROME
     Dosage: 1MG VARIABLE DOSE
     Route: 048
  2. CHOLESTYRAMINE [Concomitant]
  3. FLEET RECTAROID ENEMA [Concomitant]

REACTIONS (3)
  - DIARRHOEA [None]
  - DRUG INEFFECTIVE [None]
  - GASTROINTESTINAL MOTILITY DISORDER [None]
